FAERS Safety Report 20894440 (Version 2)
Quarter: 2022Q2

REPORT INFORMATION
  Report Type: Spontaneous
  Country: JP (occurrence: JP)
  Receive Date: 20220531
  Receipt Date: 20220603
  Transmission Date: 20220721
  Serious: Yes (Hospitalization)
  Sender: FDA-Public Use
  Company Number: JP-BAYER-2022A074756

PATIENT
  Age: 35 Year
  Sex: Female

DRUGS (1)
  1. YAZ [Suspect]
     Active Substance: DROSPIRENONE\ETHINYL ESTRADIOL
     Dosage: UNK
     Route: 048
     Dates: start: 202111, end: 20220525

REACTIONS (3)
  - Pyelonephritis [Recovering/Resolving]
  - Headache [None]
  - Pyrexia [None]

NARRATIVE: CASE EVENT DATE: 20220501
